FAERS Safety Report 23646894 (Version 2)
Quarter: 2024Q2

REPORT INFORMATION
  Report Type: Spontaneous
  Country: NL (occurrence: NL)
  Receive Date: 20240319
  Receipt Date: 20240409
  Transmission Date: 20240716
  Serious: Yes (Hospitalization)
  Sender: FDA-Public Use
  Company Number: None

PATIENT

DRUGS (5)
  1. LAMICTAL [Suspect]
     Active Substance: LAMOTRIGINE
     Indication: Epilepsy
     Dosage: 125 MG
     Route: 065
  2. CLEMASTINE FUMARATE [Suspect]
     Active Substance: CLEMASTINE FUMARATE
     Indication: Anaphylactic shock
     Dosage: 1 ML
     Route: 042
     Dates: start: 20240308
  3. CLEMASTINE FUMARATE [Suspect]
     Active Substance: CLEMASTINE FUMARATE
     Indication: Prophylaxis
  4. PREDNISONE [Concomitant]
     Active Substance: PREDNISONE
     Indication: Anaphylactic shock
     Dosage: 1 DF
     Route: 042
     Dates: start: 20240308
  5. PREDNISONE [Concomitant]
     Active Substance: PREDNISONE
     Indication: Prophylaxis

REACTIONS (6)
  - Headache [Recovering/Resolving]
  - Balance disorder [Recovering/Resolving]
  - Dizziness [Recovering/Resolving]
  - Fatigue [Recovering/Resolving]
  - Aphasia [Recovering/Resolving]
  - Malaise [Recovering/Resolving]
